FAERS Safety Report 7790277-7 (Version None)
Quarter: 2011Q3

REPORT INFORMATION
  Report Type: 
  Country: None (occurrence: None)
  Receive Date: 20110930
  Receipt Date: 20110927
  Transmission Date: 20111222
  Serious: Yes (Other)
  Sender: FDA-Public Use
  Company Number: BR-PFIZER INC-2011210912

PATIENT
  Age: 45 Year
  Sex: Female
  Weight: 72 kg

DRUGS (8)
  1. CLONAZEPAM [Concomitant]
     Indication: ANXIETY
     Dosage: HALF OF TABLET DAILY
     Dates: start: 20100301
  2. LOSARTAN [Concomitant]
     Indication: HYPERTENSION
     Dosage: 50 MG, 1X/DAY
     Dates: start: 20100701
  3. CLORANA [Concomitant]
     Indication: HYPERTENSION
     Dosage: 25 ONCE IN THE MORNING
     Dates: start: 20100201
  4. VARENICLINE TARTRATE [Suspect]
     Indication: SMOKING CESSATION THERAPY
     Dosage: UNK
     Route: 048
     Dates: start: 20110904, end: 20110901
  5. VARENICLINE TARTRATE [Suspect]
     Dosage: 0.1 MG, 2X/DAY
     Route: 048
     Dates: start: 20110901
  6. ALENTHUS XR [Concomitant]
     Indication: ANXIETY
     Dosage: UNK
     Dates: start: 20110201
  7. ATENOLOL [Concomitant]
     Indication: HYPERTENSION
     Dosage: ONCE IN THE MORNING
     Dates: end: 20100701
  8. VARENICLINE TARTRATE [Suspect]
     Dosage: 0.5 MG, 1X/DAY
     Route: 048
     Dates: start: 20110901, end: 20110901

REACTIONS (2)
  - HEART RATE IRREGULAR [None]
  - DENTAL IMPLANTATION [None]
